FAERS Safety Report 23659475 (Version 2)
Quarter: 2024Q2

REPORT INFORMATION
  Report Type: Spontaneous
  Country: US (occurrence: US)
  Receive Date: 20240321
  Receipt Date: 20240509
  Transmission Date: 20240716
  Serious: No
  Sender: FDA-Public Use
  Company Number: US-JNJFOC-20240354250

PATIENT
  Age: 44 Year
  Sex: Female

DRUGS (20)
  1. SPRAVATO [Suspect]
     Active Substance: ESKETAMINE
     Indication: Major depression
     Dosage: LAST DOSE ON 19-MAR-2024
  2. SPRAVATO [Suspect]
     Active Substance: ESKETAMINE
     Dates: start: 20240312
  3. PROZAC [Concomitant]
     Active Substance: FLUOXETINE HYDROCHLORIDE
     Indication: Depression
     Route: 048
     Dates: start: 20231006
  4. QUVIVIQ [Concomitant]
     Active Substance: DARIDOREXANT
     Indication: Insomnia
     Route: 048
     Dates: start: 20231229
  5. TRAZODONE [Concomitant]
     Active Substance: TRAZODONE HYDROCHLORIDE
     Indication: Depression
     Route: 048
     Dates: start: 20230710
  6. FLUOXETINE HYDROCHLORIDE [Concomitant]
     Active Substance: FLUOXETINE HYDROCHLORIDE
     Route: 048
  7. LAGEVRIO [Concomitant]
     Active Substance: MOLNUPIRAVIR
  8. CYCLOBENZAPRINE [Concomitant]
     Active Substance: CYCLOBENZAPRINE
  9. PROMETHAZINE [Concomitant]
     Active Substance: PROMETHAZINE HYDROCHLORIDE
  10. UBRELVY [Concomitant]
     Active Substance: UBROGEPANT
  11. ACETAZOLAMIDE [Concomitant]
     Active Substance: ACETAZOLAMIDE
  12. TRAMADOL [Concomitant]
     Active Substance: TRAMADOL\TRAMADOL HYDROCHLORIDE
  13. METOPROLOL SUCCINATE [Concomitant]
     Active Substance: METOPROLOL SUCCINATE
  14. OMALIZUMAB [Concomitant]
     Active Substance: OMALIZUMAB
     Dosage: 150 MG/ML
  15. BOTOX [Concomitant]
     Active Substance: ONABOTULINUMTOXINA
     Dosage: 100 UNIT INJECTION
  16. MIRENA [Concomitant]
     Active Substance: LEVONORGESTREL
  17. ONDANSETRON [Concomitant]
     Active Substance: ONDANSETRON
  18. LEVETIRACETAM [Concomitant]
     Active Substance: LEVETIRACETAM
  19. AJOVY [Concomitant]
     Active Substance: FREMANEZUMAB-VFRM
  20. CLONIDINE HYDROCHLORIDE [Concomitant]
     Active Substance: CLONIDINE HYDROCHLORIDE

REACTIONS (3)
  - Epistaxis [Recovered/Resolved]
  - Initial insomnia [Unknown]
  - Fatigue [Unknown]

NARRATIVE: CASE EVENT DATE: 20240312
